FAERS Safety Report 20545038 (Version 1)
Quarter: 2022Q1

REPORT INFORMATION
  Report Type: Spontaneous
  Country: US (occurrence: US)
  Receive Date: 20220303
  Receipt Date: 20220303
  Transmission Date: 20220424
  Serious: No
  Sender: FDA-Public Use
  Company Number: US-ALLERGAN-2134006US

PATIENT
  Sex: Female

DRUGS (4)
  1. RESTASIS [Suspect]
     Active Substance: CYCLOSPORINE
     Indication: Dry eye
     Dosage: 2 GTT, BID
     Route: 047
  2. TRAMADOL [Concomitant]
     Active Substance: TRAMADOL
  3. CAT^S CLAW [Concomitant]
     Active Substance: CAT^S CLAW
  4. TEARS [HYALURONATE SODIUM] [Concomitant]
     Indication: Dry eye

REACTIONS (3)
  - Eye irritation [Recovered/Resolved]
  - Drug ineffective [Unknown]
  - Product quality issue [Unknown]
